FAERS Safety Report 8209322-X (Version None)
Quarter: 2012Q1

REPORT INFORMATION
  Report Type: 
  Country: None (occurrence: None)
  Receive Date: 20120314
  Receipt Date: 20120305
  Transmission Date: 20120608
  Serious: Yes (Hospitalization)
  Sender: FDA-Public Use
  Company Number: US-BAYER-2011-087338

PATIENT
  Age: 36 Year
  Sex: Female

DRUGS (6)
  1. MEDROL [Concomitant]
     Indication: PLEURISY
     Dosage: UNK
     Route: 048
     Dates: start: 20060914
  2. ZITHROMAX [Concomitant]
     Route: 048
  3. ZOLOFT [Concomitant]
     Route: 048
  4. YAZ [Suspect]
     Dosage: UNK
     Route: 048
     Dates: start: 20060601, end: 20060901
  5. LORTAB [Concomitant]
     Indication: SCIATICA
     Dosage: UNK
     Route: 048
     Dates: start: 20060906
  6. PHENERGAN [Concomitant]
     Indication: NAUSEA
     Dosage: UNK
     Dates: start: 20060906

REACTIONS (8)
  - PULMONARY INFARCTION [None]
  - PAIN [None]
  - EMOTIONAL DISTRESS [None]
  - INJURY [None]
  - ANXIETY [None]
  - PULMONARY EMBOLISM [None]
  - GENERAL PHYSICAL HEALTH DETERIORATION [None]
  - FEAR [None]
